FAERS Safety Report 11840653 (Version 3)
Quarter: 2019Q1

REPORT INFORMATION
  Report Type: Report from Study
  Country: US (occurrence: US)
  Receive Date: 20151216
  Receipt Date: 20190325
  Transmission Date: 20190417
  Serious: Yes (Hospitalization)
  Sender: FDA-Public Use
  Company Number: US-JNJFOC-20151211390

PATIENT
  Age: 46 Year
  Sex: Male

DRUGS (2)
  1. INVOKANA [Suspect]
     Active Substance: CANAGLIFLOZIN
     Indication: TYPE 2 DIABETES MELLITUS
     Route: 048
     Dates: start: 2015
  2. INVOKANA [Suspect]
     Active Substance: CANAGLIFLOZIN
     Indication: TYPE 2 DIABETES MELLITUS
     Route: 048

REACTIONS (7)
  - Osteomyelitis [Unknown]
  - Thirst [Unknown]
  - Abnormal loss of weight [Unknown]
  - Gangrene [Unknown]
  - Pollakiuria [Unknown]
  - Diabetic foot [Unknown]
  - Foot amputation [Unknown]

NARRATIVE: CASE EVENT DATE: 2015
